FAERS Safety Report 10015656 (Version 3)
Quarter: 2014Q2

REPORT INFORMATION
  Report Type: Spontaneous
  Country: US (occurrence: US)
  Receive Date: 20140317
  Receipt Date: 20140502
  Transmission Date: 20141212
  Serious: No
  Sender: FDA-Public Use
  Company Number: US-009507513-1403USA007433

PATIENT
  Age: 30 Year
  Sex: Female
  Weight: 107.48 kg

DRUGS (1)
  1. IMPLANON [Suspect]
     Dosage: 68 MG, UNK
     Route: 059
     Dates: start: 20111115

REACTIONS (3)
  - Device breakage [Unknown]
  - Product quality issue [Unknown]
  - No adverse event [Unknown]
